FAERS Safety Report 7251617-0 (Version None)
Quarter: 2011Q1

REPORT INFORMATION
  Report Type: 
  Country: None (occurrence: None)
  Receive Date: 20110128
  Receipt Date: 20110124
  Transmission Date: 20110831
  Serious: Yes (Hospitalization)
  Sender: FDA-Public Use
  Company Number: JP-NAPPMUNDI-GBR-2011-0007591

PATIENT
  Age: 18 Year
  Sex: Female
  Weight: 50 kg

DRUGS (7)
  1. MORPHINE SULFATE [Suspect]
     Indication: PROCEDURAL PAIN
  2. ROPIVACAINE [Suspect]
     Indication: PROCEDURAL PAIN
     Dosage: 1 G, UNK
     Route: 058
  3. HALOPERIDOL [Suspect]
     Indication: ANALGESIC THERAPY
     Dosage: 5 MG, UNK
     Route: 042
  4. DROPERIDOL [Suspect]
     Indication: PROCEDURAL PAIN
  5. MORPHINE SULFATE [Suspect]
     Indication: ANALGESIC THERAPY
     Dosage: 10 MG, UNK
     Route: 058
  6. DROPERIDOL [Suspect]
     Indication: ANALGESIC THERAPY
     Dosage: 2.5 MG, UNK
     Route: 058
  7. FENTANYL [Suspect]
     Indication: ANALGESIC THERAPY

REACTIONS (1)
  - CATATONIA [None]
